FAERS Safety Report 4842026-X (Version None)
Quarter: 2005Q4

REPORT INFORMATION
  Report Type: 
  Country: None (occurrence: None)
  Receive Date: 20051130
  Receipt Date: 20050722
  Transmission Date: 20060501
  Serious: Yes (Hospitalization)
  Sender: FDA-Public Use
  Company Number: 2005CG01290

PATIENT
  Age: 43 Year
  Sex: Female
  Weight: 57 kg

DRUGS (7)
  1. NEXIUM [Suspect]
     Route: 048
     Dates: start: 20050608
  2. FOSCAVIR [Suspect]
     Indication: CYTOMEGALOVIRUS INFECTION
     Route: 042
     Dates: start: 20050608, end: 20050616
  3. FUNGIZONE [Suspect]
     Indication: HISTOPLASMOSIS DISSEMINATED
     Route: 042
     Dates: start: 20050515, end: 20050602
  4. SMECTA [Suspect]
     Route: 048
     Dates: start: 20050608
  5. WELLVONE [Suspect]
     Route: 048
     Dates: start: 20050602
  6. PARACETAMOL [Suspect]
     Route: 048
     Dates: start: 20050608
  7. VFEND [Concomitant]
     Indication: HISTOPLASMOSIS DISSEMINATED
     Dates: start: 20050602

REACTIONS (1)
  - TUBULOINTERSTITIAL NEPHRITIS [None]
